FAERS Safety Report 5673191-2 (Version None)
Quarter: 2008Q1

REPORT INFORMATION
  Report Type: 
  Country: None (occurrence: None)
  Receive Date: 20080319
  Receipt Date: 20080314
  Transmission Date: 20080703
  Serious: Yes (Hospitalization)
  Sender: FDA-Public Use
  Company Number: JP-BRISTOL-MYERS SQUIBB COMPANY-14119630

PATIENT
  Sex: Male

DRUGS (3)
  1. PARAPLATIN [Suspect]
     Indication: PINEAL GERMINOMA
     Route: 041
  2. VEPESID [Suspect]
     Indication: PINEAL GERMINOMA
     Route: 041
  3. IFOMIDE [Concomitant]
     Indication: PINEAL GERMINOMA
     Route: 042

REACTIONS (3)
  - ATRIOVENTRICULAR BLOCK COMPLETE [None]
  - CEREBRAL INFARCTION [None]
  - PANCREATITIS [None]
